FAERS Safety Report 7765216-5 (Version None)
Quarter: 2011Q3

REPORT INFORMATION
  Report Type: 
  Country: None (occurrence: None)
  Receive Date: 20110921
  Receipt Date: 20110915
  Transmission Date: 20111222
  Serious: Yes (Hospitalization)
  Sender: FDA-Public Use
  Company Number: US-GLAXOSMITHKLINE-A0940917A

PATIENT
  Sex: Female

DRUGS (5)
  1. DABIGATRAN [Concomitant]
  2. FUROSEMIDE [Concomitant]
  3. POTASSIUM [Concomitant]
  4. ADVAIR DISKUS 100/50 [Suspect]
     Indication: PRODUCT USED FOR UNKNOWN INDICATION
     Dosage: 1PUFF TWICE PER DAY
     Route: 055
  5. SYNTHROID [Concomitant]

REACTIONS (6)
  - ATRIAL FIBRILLATION [None]
  - THROMBOSIS [None]
  - SWELLING [None]
  - PRODUCT QUALITY ISSUE [None]
  - DYSPHONIA [None]
  - INCORRECT STORAGE OF DRUG [None]
